FAERS Safety Report 7551379-3 (Version None)
Quarter: 2011Q2

REPORT INFORMATION
  Report Type: 
  Country: None (occurrence: None)
  Receive Date: 20110616
  Receipt Date: 20110607
  Transmission Date: 20111010
  Serious: Yes (Hospitalization, Other)
  Sender: FDA-Public Use
  Company Number: IE-ROCHE-740291

PATIENT
  Sex: Male
  Weight: 56 kg

DRUGS (1)
  1. XELODA [Suspect]
     Route: 048
     Dates: start: 20100901, end: 20101020

REACTIONS (7)
  - FEBRILE NEUTROPENIA [None]
  - SKIN EXFOLIATION [None]
  - BONE MARROW FAILURE [None]
  - DIHYDROPYRIMIDINE DEHYDROGENASE DEFICIENCY [None]
  - GASTROINTESTINAL STOMA COMPLICATION [None]
  - PANCYTOPENIA [None]
  - PALMAR-PLANTAR ERYTHRODYSAESTHESIA SYNDROME [None]
